FAERS Safety Report 18599220 (Version 1)
Quarter: 2020Q4

REPORT INFORMATION
  Report Type: Spontaneous
  Country: PL (occurrence: PL)
  Receive Date: 20201210
  Receipt Date: 20201210
  Transmission Date: 20210114
  Serious: Yes (Other)
  Sender: FDA-Public Use
  Company Number: PL-ROCHE-2728381

PATIENT
  Age: 51 Year
  Sex: Female

DRUGS (4)
  1. VEMURAFENIB. [Suspect]
     Active Substance: VEMURAFENIB
     Indication: MALIGNANT MELANOMA
     Route: 048
     Dates: start: 201603
  2. VEMURAFENIB. [Suspect]
     Active Substance: VEMURAFENIB
     Dosage: 2X2 TABLETS
     Route: 048
     Dates: end: 20200107
  3. VEMURAFENIB. [Suspect]
     Active Substance: VEMURAFENIB
     Dosage: 2X3TABLETS
     Route: 048
     Dates: start: 201606
  4. COBIMETINIB. [Suspect]
     Active Substance: COBIMETINIB
     Indication: MALIGNANT MELANOMA
     Route: 065
     Dates: start: 201711, end: 20200107

REACTIONS (6)
  - Skin lesion [Unknown]
  - Pyrexia [Unknown]
  - Oedema [Unknown]
  - Cardiac disorder [Unknown]
  - Oedema peripheral [Unknown]
  - Rash [Unknown]

NARRATIVE: CASE EVENT DATE: 201905
